FAERS Safety Report 7462007-X (Version None)
Quarter: 2011Q2

REPORT INFORMATION
  Report Type: 
  Country: None (occurrence: None)
  Receive Date: 20110506
  Receipt Date: 20110422
  Transmission Date: 20111010
  Serious: Yes (Hospitalization)
  Sender: FDA-Public Use
  Company Number: PHHY2009JP27200

PATIENT
  Age: 60 Year
  Sex: Male
  Weight: 39 kg

DRUGS (8)
  1. ASPIRIN [Concomitant]
     Dosage: 100 MG, DAY
  2. IFENPRODIL [Concomitant]
     Dosage: 20 MG, /DAY
  3. AMLODIPINE [Concomitant]
     Dosage: 5 MG, /DAY
  4. MAGNESIUM OXIDE [Concomitant]
     Dosage: 1.5 G/ DAY
  5. LEVODOPA [Concomitant]
     Dosage: 50 MG, UNK
  6. LANSOPRAZOLE [Concomitant]
     Dosage: 30 MG, / DAY
  7. AMANTADINE HYDROCHLORIDE [Suspect]
     Indication: DEMENTIA
     Dosage: 150 MG, QD
     Route: 048
  8. AMANTADINE HYDROCHLORIDE [Suspect]
     Indication: PARKINSONISM

REACTIONS (23)
  - BLOOD CREATINE PHOSPHOKINASE INCREASED [None]
  - SPEECH DISORDER [None]
  - DYSPNOEA [None]
  - OVERDOSE [None]
  - MOANING [None]
  - BLOOD PRESSURE INCREASED [None]
  - CARDIAC FAILURE CONGESTIVE [None]
  - NEUROLEPTIC MALIGNANT SYNDROME [None]
  - MUSCULOSKELETAL STIFFNESS [None]
  - VOMITING [None]
  - PYREXIA [None]
  - PLEURAL EFFUSION [None]
  - TACHYPNOEA [None]
  - EYE MOVEMENT DISORDER [None]
  - DEPRESSED LEVEL OF CONSCIOUSNESS [None]
  - HEART RATE INCREASED [None]
  - BLOOD ALBUMIN DECREASED [None]
  - PULMONARY OEDEMA [None]
  - PNEUMONIA ASPIRATION [None]
  - DELIRIUM [None]
  - RENAL IMPAIRMENT [None]
  - RESPIRATORY FAILURE [None]
  - DEHYDRATION [None]
